FAERS Safety Report 6663786-1 (Version None)
Quarter: 2010Q2

REPORT INFORMATION
  Report Type: 
  Country: None (occurrence: None)
  Receive Date: 20100401
  Receipt Date: 20100319
  Transmission Date: 20101027
  Serious: Yes (Hospitalization)
  Sender: FDA-Public Use
  Company Number: FR-SOLVAY-00210001760

PATIENT
  Age: 31293 Day
  Sex: Female

DRUGS (3)
  1. INSULIN [Concomitant]
     Indication: DRUG USE FOR UNKNOWN INDICATION
     Dosage: DAILY DOSE: 22 INTERNATIONAL UNIT(S)
     Route: 065
  2. PERINDOPRIL ERBUMINE 2MG NOS [Suspect]
     Indication: HYPERTENSION
     Dosage: DAILY DOSE: 44 MILLIGRAM(S); 10 TABLETS IN THE MORNING, 12 TABLETS IN THE EVENING
     Route: 048
     Dates: start: 20100318, end: 20100318
  3. PERINDOPRIL ERBUMINE 2MG NOS [Suspect]
     Dosage: DAILY DOSE: 12 MILLIGRAM(S); 6 TABLETS IN THE MORNING
     Route: 048
     Dates: start: 20100319, end: 20100319

REACTIONS (2)
  - ACCIDENTAL OVERDOSE [None]
  - DRUG ADMINISTRATION ERROR [None]
